FAERS Safety Report 8873933 (Version 1)
Quarter: 2012Q4

REPORT INFORMATION
  Report Type: 
  Country: US (occurrence: US)
  Receive Date: 20121030
  Receipt Date: 20121030
  Transmission Date: 20130627
  Serious: Yes (Other)
  Sender: FDA-Public Use
  Company Number: CHPA2012US022197

PATIENT
  Age: 5 Year
  Sex: Female

DRUGS (2)
  1. TRIAMINIC DAY TIME COLD AND COUGH [Suspect]
     Indication: COUGH
     Dosage: 1 strip, Unk
     Route: 048
     Dates: end: 20121017
  2. TRIAMINIC CHILDRENS NIGHT TIME COLD AND COUGH [Suspect]
     Dosage: 1 strip, Unk

REACTIONS (3)
  - Croup infectious [Recovered/Resolved]
  - Inflammation [Recovered/Resolved]
  - Prescribed overdose [Unknown]
